FAERS Safety Report 25900708 (Version 1)
Quarter: 2025Q4

REPORT INFORMATION
  Report Type: Spontaneous
  Country: US (occurrence: None)
  Receive Date: 20251008
  Receipt Date: 20251008
  Transmission Date: 20260118
  Serious: No
  Sender: FDA-CTU
  Company Number: None

PATIENT

DRUGS (1)
  1. HUMIRA [Suspect]
     Active Substance: ADALIMUMAB

REACTIONS (6)
  - Blood glucose decreased [None]
  - Fall [None]
  - Femur fracture [None]
  - Pruritus [None]
  - Product use issue [None]
  - Insurance issue [None]
